FAERS Safety Report 6062142-7 (Version None)
Quarter: 2009Q1

REPORT INFORMATION
  Report Type: 
  Country: None (occurrence: None)
  Receive Date: 20090130
  Receipt Date: 20090130
  Transmission Date: 20090719
  Serious: Yes (Life-Threatening, Hospitalization)
  Sender: FDA-Public Use
  Company Number: None

PATIENT
  Age: 58 Year
  Sex: Male
  Weight: 108 kg

DRUGS (2)
  1. AVASTIN 400 MG GENNTECH [Suspect]
     Indication: COLON CANCER METASTATIC
     Dosage: 523 MG IV DRIP
     Route: 041
     Dates: start: 20081021, end: 20081021
  2. AVASTIN [Suspect]
     Dates: start: 20081021, end: 20081021

REACTIONS (1)
  - DEEP VEIN THROMBOSIS [None]
